FAERS Safety Report 7957171-X (Version None)
Quarter: 2011Q4

REPORT INFORMATION
  Report Type: 
  Country: None (occurrence: None)
  Receive Date: 20111205
  Receipt Date: 20111007
  Transmission Date: 20120403
  Serious: Yes (Hospitalization)
  Sender: FDA-Public Use
  Company Number: US-ROCHE-1018529

PATIENT
  Sex: Male
  Weight: 86.6 kg

DRUGS (10)
  1. AVASTIN [Suspect]
     Indication: MALIGNANT MELANOMA
     Route: 042
     Dates: start: 20110726, end: 20110928
  2. FOSAMAX [Concomitant]
     Route: 048
  3. NEXIUM [Concomitant]
     Route: 048
  4. TRICOR [Concomitant]
     Route: 048
  5. IPILIMUMAB [Suspect]
     Indication: MALIGNANT MELANOMA
     Route: 042
     Dates: start: 20110726, end: 20110928
  6. ZOLOFT [Concomitant]
     Route: 048
  7. VITAMIN D [Concomitant]
     Dosage: 800 UNITS (400 UNITS TABLETS TAKE 2).
     Route: 048
  8. COD LIVER OIL [Concomitant]
     Route: 048
  9. VALIUM [Concomitant]
     Dosage: WHEN NECESSARY
     Route: 048
  10. TRAZODONE HCL [Concomitant]
     Dosage: EVERY BEDTIME AS NECESSARY
     Route: 048

REACTIONS (2)
  - HEPATITIS [None]
  - HEPATOTOXICITY [None]
